FAERS Safety Report 11374922 (Version 2)
Quarter: 2015Q3

REPORT INFORMATION
  Report Type: Report from Study
  Country: US (occurrence: US)
  Receive Date: 20150813
  Receipt Date: 20150911
  Transmission Date: 20151125
  Serious: Yes (Hospitalization)
  Sender: FDA-Public Use
  Company Number: US-ABBVIE-15K-163-1441201-00

PATIENT
  Age: 36 Year
  Sex: Male

DRUGS (2)
  1. FENTANYL. [Concomitant]
     Active Substance: FENTANYL
     Indication: PAIN
  2. HUMIRA [Suspect]
     Active Substance: ADALIMUMAB
     Indication: CROHN^S DISEASE
     Route: 058
     Dates: start: 20141111

REACTIONS (6)
  - Postoperative adhesion [Recovered/Resolved]
  - Sinusitis [Unknown]
  - Intestinal obstruction [Recovered/Resolved]
  - Post procedural inflammation [Recovered/Resolved]
  - Interstitial lung disease [Unknown]
  - Sinusitis [Not Recovered/Not Resolved]

NARRATIVE: CASE EVENT DATE: 201506
